FAERS Safety Report 20335413 (Version 1)
Quarter: 2022Q1

REPORT INFORMATION
  Report Type: Spontaneous
  Country: US (occurrence: None)
  Receive Date: 20220113
  Receipt Date: 20220113
  Transmission Date: 20220424
  Serious: Yes (Disabling)
  Sender: FDA-Public Use
  Company Number: None

PATIENT
  Age: 36 Year
  Sex: Male
  Weight: 101.25 kg

DRUGS (3)
  1. FINASTERIDE [Suspect]
     Active Substance: FINASTERIDE
     Indication: Alopecia
     Dosage: OTHER QUANTITY : 1 DROPPER;?FREQUENCY : DAILY;?
     Route: 061
  2. VITAMINS [Concomitant]
     Active Substance: VITAMINS
  3. PROBIOTICS NOS [Concomitant]
     Active Substance: PROBIOTICS NOS

REACTIONS (9)
  - Dizziness [None]
  - Palpitations [None]
  - Ejaculation disorder [None]
  - Insomnia [None]
  - Neuropathy peripheral [None]
  - Anxiety [None]
  - Feeling abnormal [None]
  - Pain [None]
  - Blood testosterone decreased [None]

NARRATIVE: CASE EVENT DATE: 20211214
